FAERS Safety Report 18494140 (Version 5)
Quarter: 2021Q1

REPORT INFORMATION
  Report Type: Report from Study
  Country: US (occurrence: US)
  Receive Date: 20201111
  Receipt Date: 20210130
  Transmission Date: 20210419
  Serious: No
  Sender: FDA-Public Use
  Company Number: NVSC2020US291505

PATIENT
  Sex: Female

DRUGS (1)
  1. COSENTYX [Suspect]
     Active Substance: SECUKINUMAB
     Indication: ANKYLOSING SPONDYLITIS
     Dosage: 150 MG, EVERY WEEK X 5 WEEKS THEN EVERY 4
     Route: 058
     Dates: start: 20201027

REACTIONS (3)
  - Inappropriate schedule of product administration [Unknown]
  - Hypoacusis [Unknown]
  - Musculoskeletal stiffness [Unknown]
